FAERS Safety Report 11868635 (Version 2)
Quarter: 2016Q1

REPORT INFORMATION
  Report Type: Report from Study
  Country: US (occurrence: US)
  Receive Date: 20151225
  Receipt Date: 20160115
  Transmission Date: 20160526
  Serious: Yes (Hospitalization)
  Sender: FDA-Public Use
  Company Number: US-UCBSA-2015042212

PATIENT
  Age: 85 Year
  Sex: Male
  Weight: 67.6 kg

DRUGS (6)
  1. METOPROLOL. [Concomitant]
     Active Substance: METOPROLOL
     Indication: HYPERTENSION
     Dosage: 100 MG, ONCE DAILY (QD)
     Route: 048
  2. VOLTAREN [Concomitant]
     Active Substance: DICLOFENAC SODIUM
     Indication: ANTIINFLAMMATORY THERAPY
     Dosage: 75 MG, ONCE DAILY (QD)
     Route: 048
  3. NEUPRO [Suspect]
     Active Substance: ROTIGOTINE
     Indication: PARKINSON^S DISEASE
     Dosage: 1 MG, ONCE DAILY (QD)
     Route: 062
  4. NEUPRO [Suspect]
     Active Substance: ROTIGOTINE
     Dosage: 2 MG, ONCE DAILY (QD)
     Route: 062
     Dates: start: 201404, end: 201404
  5. NEUPRO [Suspect]
     Active Substance: ROTIGOTINE
     Dosage: 1 MG, ONCE DAILY (QD)
     Route: 062
     Dates: start: 2014
  6. NEUPRO [Suspect]
     Active Substance: ROTIGOTINE
     Dosage: 2 MG, ONCE DAILY (QD)
     Route: 062
     Dates: start: 2015, end: 2015

REACTIONS (3)
  - Tremor [Recovered/Resolved]
  - Vomiting [Recovered/Resolved]
  - Drug intolerance [Unknown]

NARRATIVE: CASE EVENT DATE: 201404
